FAERS Safety Report 8536659-7 (Version None)
Quarter: 2012Q2

REPORT INFORMATION
  Report Type: 
  Country: None (occurrence: None)
  Receive Date: 20120412
  Receipt Date: 20100201
  Transmission Date: 20120825
  Serious: Yes (Disabling, Other)
  Sender: FDA-Public Use
  Company Number: PHEH2010US01705

PATIENT
  Sex: Female

DRUGS (2)
  1. AREDIA [Suspect]
     Dosage: INFUSION
  2. ZOMETA [Suspect]

REACTIONS (6)
  - PAIN [None]
  - DISABILITY [None]
  - OSTEONECROSIS OF JAW [None]
  - ANXIETY [None]
  - ANHEDONIA [None]
  - INJURY [None]
